FAERS Safety Report 8508697-1 (Version None)
Quarter: 2012Q3

REPORT INFORMATION
  Report Type: 
  Country: None (occurrence: None)
  Receive Date: 20120713
  Receipt Date: 20120705
  Transmission Date: 20120928
  Serious: Yes (Other)
  Sender: FDA-Public Use
  Company Number: ES-JNJFOC-20120703553

PATIENT
  Age: 81 Year
  Sex: Male

DRUGS (5)
  1. ASPIRIN [Concomitant]
     Indication: ILL-DEFINED DISORDER
     Route: 065
  2. OMEPRAZOLE [Concomitant]
     Indication: ILL-DEFINED DISORDER
     Route: 065
  3. BISOPROLOL FUMARATE [Concomitant]
     Indication: ILL-DEFINED DISORDER
     Route: 065
  4. ZYTIGA [Suspect]
     Indication: PROSTATE CANCER
     Route: 065
     Dates: start: 20120101, end: 20120101
  5. ENALAPRIL MALEATE [Concomitant]
     Indication: ILL-DEFINED DISORDER
     Route: 065

REACTIONS (1)
  - RETINAL VEIN THROMBOSIS [None]
